FAERS Safety Report 23939394 (Version 2)
Quarter: 2024Q3

REPORT INFORMATION
  Report Type: Spontaneous
  Country: US (occurrence: US)
  Receive Date: 20240605
  Receipt Date: 20240920
  Transmission Date: 20241017
  Serious: Yes (Death)
  Sender: CHATTEM
  Company Number: US-OPELLA-2024OHG019558

PATIENT
  Age: 4 Month
  Sex: Male

DRUGS (4)
  1. UNISOM SLEEPMELTS [Suspect]
     Active Substance: DIPHENHYDRAMINE HYDROCHLORIDE
     Indication: Product used for unknown indication
  2. RANITIDINE [Suspect]
     Active Substance: RANITIDINE
     Indication: Product used for unknown indication
     Route: 065
  3. BROMPHENIRAMINE [Suspect]
     Active Substance: BROMPHENIRAMINE
     Indication: Product used for unknown indication
  4. DEXTROMETHORPHAN\LEVOMETHORPHAN [Suspect]
     Active Substance: DEXTROMETHORPHAN\LEVOMETHORPHAN
     Indication: Product used for unknown indication

REACTIONS (1)
  - Toxicity to various agents [Fatal]
